FAERS Safety Report 13519825 (Version 4)
Quarter: 2017Q3

REPORT INFORMATION
  Report Type: Spontaneous
  Country: US (occurrence: US)
  Receive Date: 20170506
  Receipt Date: 20170829
  Transmission Date: 20171127
  Serious: Yes (Other)
  Sender: FDA-Public Use
  Company Number: PHEH2017US013441

PATIENT
  Sex: Female

DRUGS (1)
  1. AFINITOR [Suspect]
     Active Substance: EVEROLIMUS
     Indication: BREAST CANCER
     Dosage: 10 MG, QD
     Route: 048
     Dates: start: 20170412

REACTIONS (10)
  - Seasonal allergy [Not Recovered/Not Resolved]
  - Paraesthesia [Unknown]
  - Bipolar disorder [Unknown]
  - Metastases to bone [Unknown]
  - Hypoaesthesia [Unknown]
  - Alopecia [Unknown]
  - Neuropathy peripheral [Not Recovered/Not Resolved]
  - Peripheral swelling [Not Recovered/Not Resolved]
  - Malignant neoplasm progression [Unknown]
  - Breast cancer [Unknown]
